FAERS Safety Report 6397729-5 (Version None)
Quarter: 2009Q4

REPORT INFORMATION
  Report Type: 
  Country: None (occurrence: None)
  Receive Date: 20091012
  Receipt Date: 20091006
  Transmission Date: 20100525
  Serious: Yes (Other)
  Sender: FDA-Public Use
  Company Number: IE-KINGPHARMUSA00001-K200901239

PATIENT
  Age: 83 Year
  Sex: Female

DRUGS (1)
  1. ALTACE [Suspect]
     Indication: HYPERTENSION
     Dosage: 5 MG, UNK

REACTIONS (3)
  - HYPERTENSION [None]
  - HYPOTENSION [None]
  - WEIGHT DECREASED [None]
